FAERS Safety Report 19945770 (Version 5)
Quarter: 2022Q1

REPORT INFORMATION
  Report Type: Spontaneous
  Country: US (occurrence: US)
  Receive Date: 20211012
  Receipt Date: 20220222
  Transmission Date: 20220423
  Serious: Yes (Other)
  Sender: FDA-Public Use
  Company Number: US-PFIZER INC-202101290769

PATIENT
  Age: 66 Year
  Sex: Male

DRUGS (1)
  1. IBRANCE [Suspect]
     Active Substance: PALBOCICLIB
     Indication: Appendix cancer
     Dosage: 125 MG

REACTIONS (6)
  - Diabetes mellitus [Unknown]
  - Fatigue [Unknown]
  - Malaise [Unknown]
  - Off label use [Unknown]
  - Sinusitis [Unknown]
  - Tumour marker increased [Unknown]
